FAERS Safety Report 6640393-8 (Version None)
Quarter: 2010Q1

REPORT INFORMATION
  Report Type: 
  Country: None (occurrence: None)
  Receive Date: 20100303
  Receipt Date: 20090407
  Transmission Date: 20100710
  Serious: Yes (Other)
  Sender: FDA-Public Use
  Company Number: 626359

PATIENT
  Age: 40 Year
  Sex: Male
  Weight: 55.8 kg

DRUGS (15)
  1. BONIVA [Suspect]
     Indication: OSTEOPOROSIS
     Dosage: 3 MG 1 PER 3 MONTH INTRAVENOUS
     Route: 042
     Dates: start: 20081210, end: 20090320
  2. ASTELIN [Concomitant]
  3. CALCIUM CARBONATE [Concomitant]
  4. DEPAKENE [Concomitant]
  5. DILANTIN [Concomitant]
  6. DRISDOL [Concomitant]
  7. FLONASE [Concomitant]
  8. LACTULOSE [Concomitant]
  9. PREVACID [Concomitant]
  10. SYNTHROID [Concomitant]
  11. GLUCERNA (SUPPLEMENT NOS) [Concomitant]
  12. TYLENOL [Concomitant]
  13. ALIVIUM (IBUPROFEN) [Concomitant]
  14. ALBUTEROL [Concomitant]
  15. CALCITONIN (CALCITONIN) [Concomitant]

REACTIONS (6)
  - INJECTION SITE ERYTHEMA [None]
  - INJECTION SITE INDURATION [None]
  - INJECTION SITE SWELLING [None]
  - INJECTION SITE VESICLES [None]
  - RASH [None]
  - WOUND NECROSIS [None]
